FAERS Safety Report 4771727-7 (Version None)
Quarter: 2005Q3

REPORT INFORMATION
  Report Type: 
  Country: None (occurrence: None)
  Receive Date: 20050916
  Receipt Date: 20050906
  Transmission Date: 20060218
  Serious: Yes (Hospitalization)
  Sender: FDA-Public Use
  Company Number: CA-ROCHE-416980

PATIENT
  Age: 57 Year
  Sex: Male
  Weight: 66.7 kg

DRUGS (10)
  1. PEGASYS [Suspect]
     Indication: HEPATITIS C
     Route: 058
     Dates: start: 20050708, end: 20050826
  2. RIBAVIRIN [Suspect]
     Indication: HEPATITIS C
     Route: 048
     Dates: start: 20050708, end: 20050826
  3. TEMAZEPAM [Concomitant]
     Dosage: AB BEDTIME.
     Dates: start: 20010915
  4. ASCORBIC ACID [Concomitant]
  5. MULTI-VITAMIN [Concomitant]
  6. FERROUS SULFATE [Concomitant]
  7. SUSTIVA [Concomitant]
  8. 3TC [Concomitant]
  9. CIPROFLOXACIN [Concomitant]
     Dates: start: 20050815
  10. TENOFOVIR [Concomitant]

REACTIONS (4)
  - AMNESIA [None]
  - HALLUCINATION, VISUAL [None]
  - HOMICIDAL IDEATION [None]
  - PERSECUTORY DELUSION [None]
